FAERS Safety Report 7089746-7 (Version None)
Quarter: 2010Q4

REPORT INFORMATION
  Report Type: 
  Country: None (occurrence: None)
  Receive Date: 20101108
  Receipt Date: 20100609
  Transmission Date: 20110411
  Serious: No
  Sender: FDA-Public Use
  Company Number: US-ABBOTT-10P-163-0647942-00

PATIENT
  Sex: Male
  Weight: 88.53 kg

DRUGS (2)
  1. TRICOR [Suspect]
     Indication: BLOOD TRIGLYCERIDES INCREASED
     Route: 058
     Dates: start: 20090101, end: 20090101
  2. NIACOR [Concomitant]

REACTIONS (4)
  - FEELING ABNORMAL [None]
  - LETHARGY [None]
  - MEDICATION RESIDUE [None]
  - MYALGIA [None]
